FAERS Safety Report 9365916 (Version 1)
Quarter: 2013Q2

REPORT INFORMATION
  Report Type: Spontaneous
  Country: US (occurrence: US)
  Receive Date: 20130625
  Receipt Date: 20130625
  Transmission Date: 20140414
  Serious: No
  Sender: FDA-Public Use
  Company Number: US-MYLANLABS-2013S1008382

PATIENT
  Sex: Female

DRUGS (2)
  1. NIFEDIPINE EXTENDED-RELEASE TABLETS [Suspect]
  2. PRAVASTATIN [Suspect]
     Route: 048

REACTIONS (1)
  - Dry throat [Not Recovered/Not Resolved]
